FAERS Safety Report 25481834 (Version 1)
Quarter: 2025Q2

REPORT INFORMATION
  Report Type: Spontaneous
  Country: FR (occurrence: FR)
  Receive Date: 20250626
  Receipt Date: 20250626
  Transmission Date: 20250716
  Serious: Yes (Hospitalization)
  Sender: SANDOZ
  Company Number: FR-ADIENNEP-2019AD000630

PATIENT
  Age: 37 Year
  Sex: Male
  Weight: 70 kg

DRUGS (9)
  1. BUSULFAN [Suspect]
     Active Substance: BUSULFAN
     Indication: Allogenic stem cell transplantation
     Dosage: 258 MG, QD (DAILY)
     Route: 042
     Dates: start: 20190928, end: 20190930
  2. CELLCEPT [Suspect]
     Active Substance: MYCOPHENOLATE MOFETIL
     Route: 042
     Dates: start: 20191008
  3. CELLCEPT [Suspect]
     Active Substance: MYCOPHENOLATE MOFETIL
     Indication: Prophylaxis against graft versus host disease
     Route: 048
     Dates: start: 20191108
  4. CYCLOSPORINE [Suspect]
     Active Substance: CYCLOSPORINE
     Route: 042
     Dates: start: 20191008
  5. CYCLOSPORINE [Suspect]
     Active Substance: CYCLOSPORINE
     Indication: Prophylaxis against graft versus host disease
     Route: 048
     Dates: start: 20191108
  6. CYCLOPHOSPHAMIDE [Suspect]
     Active Substance: CYCLOPHOSPHAMIDE
     Indication: Prophylaxis against graft versus host disease
     Dosage: 50 MG/KG, QD (DAILY)
     Route: 042
     Dates: start: 20191006, end: 20191007
  7. FLUDARABINE [Suspect]
     Active Substance: FLUDARABINE PHOSPHATE
     Indication: Allogenic stem cell transplantation
     Dosage: 80 MG, QD (DAILY)
     Route: 042
     Dates: start: 20190928, end: 20191001
  8. THIOTEPA [Suspect]
     Active Substance: THIOTEPA
     Indication: Allogenic stem cell transplantation
     Dosage: 400 MG, QD (DAILY)
     Route: 042
     Dates: start: 20190926, end: 20190927
  9. CYCLOPHOSPHAMIDE [Concomitant]
     Active Substance: CYCLOPHOSPHAMIDE
     Indication: Prophylaxis
     Route: 065

REACTIONS (1)
  - Acute graft versus host disease in intestine [Not Recovered/Not Resolved]
